FAERS Safety Report 18594190 (Version 16)
Quarter: 2021Q3

REPORT INFORMATION
  Report Type: Other
  Country: GB (occurrence: GB)
  Receive Date: 20201209
  Receipt Date: 20210716
  Transmission Date: 20211014
  Serious: Yes (Life-Threatening, Hospitalization, Other)
  Sender: FDA-Public Use
  Company Number: GB-MACLEODS PHARMACEUTICALS US LTD-MAC2020029356

PATIENT

DRUGS (38)
  1. CLOPIDOGREL [Suspect]
     Active Substance: CLOPIDOGREL BISULFATE
     Dosage: 75 MILLIGRAM, QD, ORAL SOLUTION, CLOPIDOGREL HYDROGEN SULPHATE
     Route: 048
  2. FOLIC ACID. [Suspect]
     Active Substance: FOLIC ACID
     Indication: EXTRAPYRAMIDAL DISORDER
     Dosage: 5 MILLIGRAM, QD
     Route: 048
  3. SIMVASTATIN. [Suspect]
     Active Substance: SIMVASTATIN
     Indication: HYPERLIPIDAEMIA
     Dosage: 40 MILLIGRAM, QD, FILM COATED TABLET
     Route: 048
  4. FOLIC ACID. [Suspect]
     Active Substance: FOLIC ACID
     Dosage: 5 MILLIGRAM, TID
     Route: 048
  5. FOLIC ACID. [Suspect]
     Active Substance: FOLIC ACID
     Dosage: 5 MILLIGRAM
     Route: 048
  6. CLOZARIL [Suspect]
     Active Substance: CLOZAPINE
     Indication: EXTRAPYRAMIDAL DISORDER
     Dosage: UNK, TABLET
     Route: 048
  7. SERTRALINE HYDROCHLORIDE. [Suspect]
     Active Substance: SERTRALINE HYDROCHLORIDE
     Dosage: 40 MILLIGRAM, QD
     Route: 048
  8. SERTRALINE HYDROCHLORIDE. [Suspect]
     Active Substance: SERTRALINE HYDROCHLORIDE
     Dosage: 150 MILLIGRAM
     Route: 048
  9. PROCYCLIDINE HYDROCHLORIDE [Suspect]
     Active Substance: PROCYCLIDINE HYDROCHLORIDE
     Indication: EXTRAPYRAMIDAL DISORDER
     Dosage: 5 MILLIGRAM, TID
     Route: 048
  10. PROCYCLIDINE HYDROCHLORIDE [Suspect]
     Active Substance: PROCYCLIDINE HYDROCHLORIDE
     Dosage: 5 MILLIGRAM, TID, 15 MG QD
     Route: 048
  11. CLOPIDOGREL [Suspect]
     Active Substance: CLOPIDOGREL BISULFATE
     Dosage: 75 MILLIGRAM, QD
     Route: 048
  12. THIAMINE. [Suspect]
     Active Substance: THIAMINE
     Indication: VITAMIN B COMPLEX DEFICIENCY
     Dosage: 300 MILLIGRAM, QD, THIAMINE HYDROCHLORIDE
     Route: 048
  13. THIAMINE. [Suspect]
     Active Substance: THIAMINE
     Dosage: 300 MILLIGRAM, QD
     Route: 048
  14. FOLIC ACID. [Suspect]
     Active Substance: FOLIC ACID
     Indication: BLOOD FOLATE DECREASED
     Dosage: 5 MILLIGRAM, TID
     Route: 048
  15. FOLIC ACID. [Suspect]
     Active Substance: FOLIC ACID
     Dosage: 5 MILLIGRAM
     Route: 048
  16. CLOZARIL [Suspect]
     Active Substance: CLOZAPINE
     Dosage: 75 MILLIGRAM, QD, TABLET
     Route: 048
     Dates: start: 20090819, end: 202101
  17. CLOPIDOGREL [Suspect]
     Active Substance: CLOPIDOGREL BISULFATE
     Dosage: 75 MILLIGRAM, QD, CLOPIDOGREL HYDROGEN SULFATE ORAL SOLUTION
     Route: 048
  18. FOLIC ACID. [Suspect]
     Active Substance: FOLIC ACID
     Dosage: 15 MILLIGRAM, QD
     Route: 048
  19. PROCYCLIDINE HYDROCHLORIDE [Suspect]
     Active Substance: PROCYCLIDINE HYDROCHLORIDE
     Dosage: 5 MILLIGRAM, TID, 15 MG QD
     Route: 048
  20. PROCYCLIDINE HYDROCHLORIDE [Suspect]
     Active Substance: PROCYCLIDINE HYDROCHLORIDE
     Dosage: 15 MILLIGRAM, TID
     Route: 048
  21. CLOZARIL [Suspect]
     Active Substance: CLOZAPINE
     Indication: SCHIZOPHRENIA
     Dosage: 75 MILLIGRAM, QD, TABLET
     Route: 048
     Dates: start: 20090819, end: 202011
  22. CLOPIDOGREL [Suspect]
     Active Substance: CLOPIDOGREL BISULFATE
     Indication: TRANSIENT ISCHAEMIC ATTACK
     Dosage: 75 MILLIGRAM, QD, 15MG/ML,ORAL SOLUTION
     Route: 048
  23. CLOPIDOGREL [Suspect]
     Active Substance: CLOPIDOGREL BISULFATE
     Dosage: 75 MILLIGRAM, QD, ORAL SOLUTION, CLOPIDOGREL HYDROGEN SULPHATE
     Route: 048
  24. CLOPIDOGREL [Suspect]
     Active Substance: CLOPIDOGREL BISULFATE
     Dosage: 75 MILLIGRAM, QD, ORAL SOLUTION, CLOPIDOGREL HYDROGEN SULFATE
     Route: 048
  25. THIAMINE. [Suspect]
     Active Substance: THIAMINE
     Dosage: 300 MILLIGRAM, QD
     Route: 048
  26. SIMVASTATIN. [Suspect]
     Active Substance: SIMVASTATIN
     Dosage: 40 MILLIGRAM, QD, ORAL SUSPENSION
     Route: 048
  27. CLOPIDOGREL [Suspect]
     Active Substance: CLOPIDOGREL BISULFATE
     Dosage: 75 MILLIGRAM, QD, ORAL SOLUTION, CLOPIDOGREL BISULPHATE
     Route: 048
  28. SERTRALINE HYDROCHLORIDE. [Suspect]
     Active Substance: SERTRALINE HYDROCHLORIDE
     Indication: DEPRESSED MOOD
     Dosage: 150 MILLIGRAM
     Route: 048
  29. THIAMINE. [Suspect]
     Active Substance: THIAMINE
     Dosage: 300 MILLIGRAM, QD
     Route: 048
  30. THIAMINE. [Suspect]
     Active Substance: THIAMINE
     Dosage: 300 MILLIGRAM, QD
     Route: 048
  31. THIAMINE. [Suspect]
     Active Substance: THIAMINE
     Dosage: 300 MILLIGRAM, QD
     Route: 048
  32. FOLIC ACID. [Suspect]
     Active Substance: FOLIC ACID
     Dosage: 15 MILLIGRAM, QD
     Route: 048
  33. PROCYCLIDINE HYDROCHLORIDE [Suspect]
     Active Substance: PROCYCLIDINE HYDROCHLORIDE
     Dosage: 5 MILLIGRAM, TID
     Route: 048
  34. SERTRALINE HYDROCHLORIDE. [Suspect]
     Active Substance: SERTRALINE HYDROCHLORIDE
     Dosage: 40 MILLIGRAM, QD
     Route: 048
  35. THIAMINE. [Suspect]
     Active Substance: THIAMINE
     Dosage: 300 MILLIGRAM, QD
     Route: 048
  36. SIMVASTATIN. [Suspect]
     Active Substance: SIMVASTATIN
     Dosage: 40 MILLIGRAM, QD, FILM CAOTED TABLET
     Route: 048
  37. SIMVASTATIN. [Suspect]
     Active Substance: SIMVASTATIN
     Dosage: 40 MILLIGRAM, QD, FILM CAOTED TABLET
     Route: 048
  38. PROCYCLIDINE HYDROCHLORIDE [Suspect]
     Active Substance: PROCYCLIDINE HYDROCHLORIDE
     Dosage: 45 MILLIGRAM, QD
     Route: 048

REACTIONS (4)
  - Off label use [Unknown]
  - Product use issue [Unknown]
  - Fall [Unknown]
  - Product dose omission issue [Unknown]

NARRATIVE: CASE EVENT DATE: 20201106
